FAERS Safety Report 5786306-2 (Version None)
Quarter: 2008Q2

REPORT INFORMATION
  Report Type: 
  Country: None (occurrence: None)
  Receive Date: 20080624
  Receipt Date: 20070709
  Transmission Date: 20081010
  Serious: No
  Sender: FDA-Public Use
  Company Number: US-ASTRAZENECA-2007UW15994

PATIENT
  Age: 75 Year
  Sex: Female

DRUGS (6)
  1. PULMICORT RESPULES [Suspect]
     Indication: CHRONIC OBSTRUCTIVE PULMONARY DISEASE
     Dosage: .25/2ML
     Route: 055
  2. LIPITOR [Concomitant]
  3. DUONEB [Concomitant]
  4. CENTRUM [Concomitant]
  5. VITAMINS [Concomitant]
  6. QUINAPRIL [Concomitant]

REACTIONS (3)
  - DYSPNOEA [None]
  - LUNG DISORDER [None]
  - MEDICATION ERROR [None]
